FAERS Safety Report 7758165-X (Version None)
Quarter: 2011Q3

REPORT INFORMATION
  Report Type: 
  Country: None (occurrence: None)
  Receive Date: 20110919
  Receipt Date: 20110907
  Transmission Date: 20111222
  Serious: No
  Sender: FDA-Public Use
  Company Number: US-BIOGENIDEC-2011BI034768

PATIENT
  Age: 55 Year
  Sex: Female

DRUGS (8)
  1. BETASERON [Concomitant]
     Indication: MULTIPLE SCLEROSIS
  2. ZOLOFT [Concomitant]
     Indication: MULTIPLE SCLEROSIS
  3. XANAX [Concomitant]
     Indication: ANXIETY
  4. AVONEX [Suspect]
     Route: 030
     Dates: start: 20110904
  5. AVONEX [Suspect]
     Route: 030
     Dates: start: 20090318, end: 20090426
  6. XANAX [Concomitant]
     Indication: PANIC ATTACK
  7. AVONEX [Suspect]
     Indication: MULTIPLE SCLEROSIS
     Route: 030
     Dates: start: 20110731, end: 20110828
  8. COPAXONE [Concomitant]
     Indication: MULTIPLE SCLEROSIS
     Dates: start: 20070101

REACTIONS (2)
  - TREMOR [None]
  - INSOMNIA [None]
